FAERS Safety Report 9721535 (Version 1)
Quarter: 2013Q4

REPORT INFORMATION
  Report Type: Other
  Country: TW (occurrence: TW)
  Receive Date: 20131130
  Receipt Date: 20131130
  Transmission Date: 20140711
  Serious: Yes (Other)
  Sender: FDA-Public Use
  Company Number: TW-BRISTOL-MYERS SQUIBB COMPANY-19849991

PATIENT
  Age: 71 Year
  Sex: Male

DRUGS (4)
  1. WARFARIN SODIUM [Suspect]
     Indication: ATRIAL FIBRILLATION
  2. CLOPIDOGREL BISULFATE [Concomitant]
     Dosage: INITIAL FOR 6MONTHS
  3. ASPIRIN [Concomitant]
     Dosage: INITIAL FOR 6 MONTHS
  4. VERAPAMIL [Concomitant]

REACTIONS (1)
  - Vascular calcification [Unknown]
